FAERS Safety Report 6208492-2 (Version None)
Quarter: 2009Q2

REPORT INFORMATION
  Report Type: 
  Country: None (occurrence: None)
  Receive Date: 20090522
  Receipt Date: 20090216
  Transmission Date: 20091009
  Serious: No
  Sender: FDA-Public Use
  Company Number: 8043067

PATIENT
  Age: 48 Year
  Sex: Female
  Weight: 86.3 kg

DRUGS (10)
  1. CIMZIA [Suspect]
     Indication: CROHN'S DISEASE
     Dosage: 400 MG SC
     Route: 058
     Dates: start: 20090209
  2. PREDNISONE [Concomitant]
  3. AVANDIA [Concomitant]
  4. SYNTHROID [Concomitant]
  5. PROTONIX [Concomitant]
  6. ZANTAC [Concomitant]
  7. TRICOR [Concomitant]
  8. VITAMIN D [Concomitant]
  9. REMERON [Concomitant]
  10. KLONOPIN [Concomitant]

REACTIONS (4)
  - DRUG INEFFECTIVE [None]
  - EYE IRRITATION [None]
  - MYDRIASIS [None]
  - VISUAL IMPAIRMENT [None]
